FAERS Safety Report 14309583 (Version 11)
Quarter: 2018Q3

REPORT INFORMATION
  Report Type: Spontaneous
  Country: CA (occurrence: CA)
  Receive Date: 20171220
  Receipt Date: 20180821
  Transmission Date: 20181010
  Serious: Yes (Other)
  Sender: FDA-Public Use
  Company Number: CA-CELLTRION INC.-2017CA014736

PATIENT

DRUGS (6)
  1. INFLECTRA [Suspect]
     Active Substance: INFLIXIMAB-DYYB
     Indication: CROHN^S DISEASE
     Dosage: 283.5 MG, CYCLIC, EVERY 0,2,6 WEEKS, THEN EVERY 8 WEEKS
     Route: 042
     Dates: start: 20170821, end: 20171002
  2. PREDNISONE. [Concomitant]
     Active Substance: PREDNISONE
     Dosage: 40 MG (WILL DECREASE BY 5MG IN 2 WEEKS, THEN 5 MG EVERY WEEK)
     Dates: start: 20170721
  3. INFLECTRA [Suspect]
     Active Substance: INFLIXIMAB-DYYB
     Dosage: 500 MG, CYCLIC EVERY 4 WEEKS
     Route: 042
     Dates: start: 20180710, end: 20180710
  4. INFLECTRA [Suspect]
     Active Substance: INFLIXIMAB-DYYB
     Dosage: 283.5 EVERY 4 WEEKS
     Route: 042
     Dates: start: 20171031, end: 20171227
  5. INFLECTRA [Suspect]
     Active Substance: INFLIXIMAB-DYYB
     Dosage: 500 MG, CYCLIC EVERY 4 WEEKS
     Route: 042
     Dates: start: 20180515
  6. INFLECTRA [Suspect]
     Active Substance: INFLIXIMAB-DYYB
     Dosage: 400 MG, CYCLIC EVERY 4 WEEKS
     Route: 042
     Dates: start: 20180122, end: 20180416

REACTIONS (23)
  - Drug effect incomplete [Not Recovered/Not Resolved]
  - White blood cell count increased [Unknown]
  - C-reactive protein increased [Recovering/Resolving]
  - Iron deficiency [Unknown]
  - Mean cell haemoglobin decreased [Not Recovered/Not Resolved]
  - Serum ferritin decreased [Recovered/Resolved]
  - Product use issue [Unknown]
  - Mean cell haemoglobin concentration decreased [Unknown]
  - Weight increased [Unknown]
  - Malaise [Unknown]
  - Mean cell volume decreased [Not Recovered/Not Resolved]
  - Nasopharyngitis [Not Recovered/Not Resolved]
  - Red cell distribution width increased [Not Recovered/Not Resolved]
  - Heart rate decreased [Unknown]
  - Red blood cell count decreased [Unknown]
  - Haematocrit decreased [Recovered/Resolved]
  - Platelet count increased [Unknown]
  - Monocyte count increased [Unknown]
  - Haemoglobin decreased [Not Recovered/Not Resolved]
  - Faecal calprotectin increased [Unknown]
  - Drug level above therapeutic [Unknown]
  - Neutrophil count increased [Unknown]
  - Drug level decreased [Recovering/Resolving]

NARRATIVE: CASE EVENT DATE: 20171014
